FAERS Safety Report 8128468-8 (Version None)
Quarter: 2012Q1

REPORT INFORMATION
  Report Type: 
  Country: None (occurrence: None)
  Receive Date: 20120210
  Receipt Date: 20120206
  Transmission Date: 20120608
  Serious: Yes (Other)
  Sender: FDA-Public Use
  Company Number: US-BAYER-2012-012563

PATIENT
  Age: 70 Year
  Sex: Male

DRUGS (4)
  1. PLAVIX [Suspect]
     Indication: STENT PLACEMENT
     Dosage: 75 MG, QD
     Dates: start: 20100901
  2. ASPIRIN [Suspect]
     Dosage: DAILY DOSE 81 MG
  3. BETA BLOCKING AGENTS [Concomitant]
  4. ASPIRIN [Suspect]
     Dosage: DAILY DOSE 325 MG

REACTIONS (5)
  - HAEMORRHAGE [None]
  - HAEMATOCHEZIA [None]
  - PAIN IN EXTREMITY [None]
  - TENDERNESS [None]
  - MYALGIA [None]
